FAERS Safety Report 9261971 (Version 1)
Quarter: 2013Q2

REPORT INFORMATION
  Report Type: Spontaneous
  Country: US (occurrence: US)
  Receive Date: 20130429
  Receipt Date: 20130429
  Transmission Date: 20140414
  Serious: Yes (Other)
  Sender: FDA-Public Use
  Company Number: US-B.I. PHARMACEUTICALS,INC./RIDGEFIELD-2013-BI-10942BP

PATIENT
  Sex: Female
  Weight: 77 kg

DRUGS (4)
  1. SPIRIVA [Suspect]
     Indication: CHRONIC OBSTRUCTIVE PULMONARY DISEASE
     Dosage: 18 MCG
     Route: 055
     Dates: start: 2008
  2. PRANDIN [Concomitant]
     Indication: DIABETES MELLITUS
     Route: 048
  3. COUMADIN [Concomitant]
     Indication: THROMBOSIS PROPHYLAXIS
     Route: 048
  4. PRAVASTATIN [Concomitant]
     Indication: BLOOD CHOLESTEROL INCREASED

REACTIONS (3)
  - Urinary incontinence [Not Recovered/Not Resolved]
  - Macular degeneration [Not Recovered/Not Resolved]
  - Dry mouth [Not Recovered/Not Resolved]
